FAERS Safety Report 4607780-0 (Version None)
Quarter: 2005Q1

REPORT INFORMATION
  Report Type: 
  Country: None (occurrence: None)
  Receive Date: 20050310
  Receipt Date: 20050228
  Transmission Date: 20050727
  Serious: Yes (Hospitalization, Other)
  Sender: FDA-Public Use
  Company Number: 2005029904

PATIENT
  Age: 86 Year
  Sex: Male
  Weight: 63.5 kg

DRUGS (8)
  1. VFEND [Suspect]
     Indication: CANDIDA SEPSIS
     Dosage: 400 MG (2 IN 1 D), INTRAVENOUS
     Route: 042
     Dates: start: 20050203, end: 20050208
  2. SALMETEROL XINAFOATE (SALMETEROL XINAFOATE) [Concomitant]
  3. OMEPRAZOLE [Concomitant]
  4. PIP/TAZO (PIPERACILLIN SODIUM TAZOBACTAM SODIUM) [Concomitant]
  5. CIPROFLOXACIN [Concomitant]
  6. NOREPINEPHRINE (NOREPINEPHRINE) [Concomitant]
  7. BUMETANIDE [Concomitant]
  8. AMIODARONE HCL [Concomitant]

REACTIONS (3)
  - ATRIAL FIBRILLATION [None]
  - RENAL FAILURE ACUTE [None]
  - SEPTIC SHOCK [None]
